FAERS Safety Report 7249751-4 (Version None)
Quarter: 2011Q1

REPORT INFORMATION
  Report Type: 
  Country: None (occurrence: None)
  Receive Date: 20110128
  Receipt Date: 20100209
  Transmission Date: 20110831
  Serious: No
  Sender: FDA-Public Use
  Company Number: A0839430A

PATIENT
  Age: 43 Year
  Sex: Female

DRUGS (2)
  1. WELLBUTRIN [Suspect]
     Indication: DEPRESSION
     Dosage: 100MG TWICE PER DAY
     Route: 048
     Dates: start: 20091201
  2. SUBOXONE [Concomitant]

REACTIONS (3)
  - MEDICATION ERROR [None]
  - DRUG INEFFECTIVE [None]
  - ANXIETY [None]
